FAERS Safety Report 11203458 (Version 3)
Quarter: 2015Q3

REPORT INFORMATION
  Report Type: Spontaneous
  Country: US (occurrence: US)
  Receive Date: 20150619
  Receipt Date: 20150910
  Transmission Date: 20151125
  Serious: No
  Sender: FDA-Public Use
  Company Number: US-PFIZER INC-2015200540

PATIENT
  Age: 60 Year
  Sex: Female

DRUGS (1)
  1. SUTENT [Suspect]
     Active Substance: SUNITINIB MALATE
     Indication: NEOPLASM MALIGNANT
     Dosage: 12.5 MG, UNK
     Dates: start: 20141231, end: 20150812

REACTIONS (5)
  - Neoplasm malignant [Unknown]
  - Oral discomfort [Unknown]
  - Stomatitis [Unknown]
  - Abdominal discomfort [Unknown]
  - Disease progression [Unknown]
